FAERS Safety Report 4788438-4 (Version None)
Quarter: 2005Q3

REPORT INFORMATION
  Report Type: 
  Country: None (occurrence: None)
  Receive Date: 20050920
  Receipt Date: 20050810
  Transmission Date: 20060218
  Serious: Yes (Life-Threatening)
  Sender: FDA-Public Use
  Company Number: 0205030

PATIENT
  Age: 66 Year
  Sex: Female

DRUGS (1)
  1. DEPODUR [Suspect]
     Indication: POSTOPERATIVE ANALGESIA
     Dosage: 15 MG ONCE EPIDURAL
     Route: 008

REACTIONS (3)
  - OXYGEN SATURATION DECREASED [None]
  - SEDATION [None]
  - SOMNOLENCE [None]
